FAERS Safety Report 11097039 (Version 3)
Quarter: 2017Q1

REPORT INFORMATION
  Report Type: Spontaneous
  Country: US (occurrence: US)
  Receive Date: 20150507
  Receipt Date: 20170314
  Transmission Date: 20170428
  Serious: Yes (Other)
  Sender: FDA-Public Use
  Company Number: US-ELI_LILLY_AND_COMPANY-US201505000653

PATIENT
  Sex: Female

DRUGS (4)
  1. CYMBALTA [Suspect]
     Active Substance: DULOXETINE HYDROCHLORIDE
     Indication: FIBROMYALGIA
     Dosage: 30 MG, TID
     Route: 048
     Dates: start: 201112, end: 2012
  2. CYMBALTA [Suspect]
     Active Substance: DULOXETINE HYDROCHLORIDE
     Indication: DEPRESSION
     Dosage: 30 MG, UNKNOWN
     Route: 048
     Dates: start: 20071011
  3. CYMBALTA [Suspect]
     Active Substance: DULOXETINE HYDROCHLORIDE
     Indication: ANXIETY
     Dosage: 30 MG, BID
     Dates: start: 2009
  4. CYMBALTA [Suspect]
     Active Substance: DULOXETINE HYDROCHLORIDE
     Dosage: 60 MG, BID
     Route: 048
     Dates: start: 2012, end: 2012

REACTIONS (25)
  - Irritability [Unknown]
  - Confusional state [Unknown]
  - Diarrhoea [Unknown]
  - Mood swings [Unknown]
  - Headache [Unknown]
  - Nausea [Unknown]
  - Sensory disturbance [Unknown]
  - Muscle twitching [Unknown]
  - Vertigo [Unknown]
  - Paraesthesia [Unknown]
  - Vision blurred [Unknown]
  - Gait disturbance [Unknown]
  - Fatigue [Unknown]
  - Suicidal ideation [Unknown]
  - Dysphoria [Unknown]
  - Seizure [Unknown]
  - Hyperhidrosis [Unknown]
  - Anxiety [Unknown]
  - Agitation [Unknown]
  - Tremor [Unknown]
  - Affect lability [Unknown]
  - Muscular weakness [Unknown]
  - Loss of consciousness [Unknown]
  - Drug withdrawal syndrome [Unknown]
  - Dizziness [Unknown]
